FAERS Safety Report 18447907 (Version 1)
Quarter: 2020Q4

REPORT INFORMATION
  Report Type: Spontaneous
  Country: US (occurrence: US)
  Receive Date: 20201030
  Receipt Date: 20201030
  Transmission Date: 20210114
  Serious: Yes (Other)
  Sender: FDA-Public Use
  Company Number: US-UPSHER-SMITH LABORATORIES, LLC-2020USL00490

PATIENT
  Age: 43 Year
  Sex: Female
  Weight: 86.17 kg

DRUGS (20)
  1. AMLODIPINE [Concomitant]
     Active Substance: AMLODIPINE BESYLATE
     Dosage: 10 MG, 1X/DAY
     Route: 048
  2. EFFEXOR XR [Concomitant]
     Active Substance: VENLAFAXINE HYDROCHLORIDE
     Dosage: 150 MG, 1X/DAY
     Route: 048
  3. MULTIVITAMIN [Concomitant]
     Active Substance: VITAMINS
     Dosage: 1 TABLETS, 1X/DAY
     Route: 048
  4. PROAIR HFA [Concomitant]
     Active Substance: ALBUTEROL SULFATE
     Dosage: 1 DOSAGE UNITS (PUFF), UP TO 4X/DAY AS NEEDED
  5. JANTOVEN [Suspect]
     Active Substance: WARFARIN SODIUM
     Indication: THROMBOSIS PROPHYLAXIS
     Dosage: 15 MG, 1X/DAY
     Route: 048
     Dates: start: 20200904, end: 20200905
  6. JANTOVEN [Suspect]
     Active Substance: WARFARIN SODIUM
     Dosage: 7.5 MG, 1X/DAY
     Route: 048
     Dates: start: 20200913, end: 20200913
  7. VITAMIN D [Concomitant]
     Active Substance: VITAMIN D NOS
  8. JANTOVEN [Suspect]
     Active Substance: WARFARIN SODIUM
     Dosage: 11.25 MG, 1X/DAY
     Route: 048
     Dates: start: 20200908, end: 20200909
  9. JANTOVEN [Suspect]
     Active Substance: WARFARIN SODIUM
     Dosage: 11.25 MG, 1X/DAY
     Route: 048
     Dates: start: 20200912, end: 20200912
  10. FLONASE [Concomitant]
     Active Substance: FLUTICASONE PROPIONATE
     Dosage: 1 SPRAY IN BOTH NOSTRILS, UP TO 1X/DAY AS NEEDED
     Route: 045
  11. JANTOVEN [Suspect]
     Active Substance: WARFARIN SODIUM
     Indication: THROMBOSIS PROPHYLAXIS
     Dosage: VARIABLE DOSE, 1X/DAY
     Route: 048
     Dates: start: 2010, end: 20200828
  12. ABILIFY [Concomitant]
     Active Substance: ARIPIPRAZOLE
     Dosage: 5 MG, 1X/DAY
     Route: 048
  13. JANTOVEN [Suspect]
     Active Substance: WARFARIN SODIUM
     Dosage: 11.25 MG, 1X/DAY
     Route: 048
     Dates: start: 20200906, end: 20200906
  14. JANTOVEN [Suspect]
     Active Substance: WARFARIN SODIUM
     Dosage: 3.75 MG, 1X/DAY
     Route: 048
     Dates: start: 20200914, end: 20200914
  15. JANTOVEN [Suspect]
     Active Substance: WARFARIN SODIUM
     Dosage: 15 MG
     Route: 048
     Dates: start: 202008, end: 202008
  16. CALCIUM [Concomitant]
     Active Substance: CALCIUM
  17. JANTOVEN [Suspect]
     Active Substance: WARFARIN SODIUM
     Dosage: 10 MG
     Route: 048
     Dates: start: 202008, end: 202008
  18. JANTOVEN [Suspect]
     Active Substance: WARFARIN SODIUM
     Dosage: UNK
     Route: 048
     Dates: start: 202008, end: 20200903
  19. JANTOVEN [Suspect]
     Active Substance: WARFARIN SODIUM
     Dosage: 7.5 MG, 1X/DAY
     Route: 048
     Dates: start: 20200907, end: 20200907
  20. JANTOVEN [Suspect]
     Active Substance: WARFARIN SODIUM
     Dosage: 18.75 MG, 1X/DAY
     Route: 048
     Dates: start: 20200910, end: 20200911

REACTIONS (2)
  - International normalised ratio decreased [Recovered/Resolved]
  - International normalised ratio increased [Not Recovered/Not Resolved]

NARRATIVE: CASE EVENT DATE: 20200616
